FAERS Safety Report 15300786 (Version 1)
Quarter: 2018Q3

REPORT INFORMATION
  Report Type: Spontaneous
  Country: US (occurrence: US)
  Receive Date: 20180821
  Receipt Date: 20180821
  Transmission Date: 20181010
  Serious: No
  Sender: FDA-Public Use
  Company Number: US-PFIZER INC-2018334501

PATIENT
  Age: 77 Year
  Sex: Male

DRUGS (1)
  1. SUTENT [Suspect]
     Active Substance: SUNITINIB MALATE
     Dosage: 37.5 MG, CYCLIC (37.5MG 1 CAP PO QDAY FOR 14 DAYS THEN 7 DAYS OFF)
     Route: 048
     Dates: start: 20180706

REACTIONS (3)
  - Diarrhoea [Recovering/Resolving]
  - Nasal discomfort [Unknown]
  - Rash [Unknown]

NARRATIVE: CASE EVENT DATE: 2018
